FAERS Safety Report 23992973 (Version 1)
Quarter: 2024Q2

REPORT INFORMATION
  Report Type: Spontaneous
  Country: US (occurrence: US)
  Receive Date: 20240620
  Receipt Date: 20240620
  Transmission Date: 20240716
  Serious: No
  Sender: FDA-Public Use
  Company Number: US-GSKCCFUS-Case-02030205_AE-112592

PATIENT
  Sex: Female

DRUGS (2)
  1. NUCALA [Suspect]
     Active Substance: MEPOLIZUMAB
     Indication: Chronic obstructive pulmonary disease
     Dosage: UNK UNK, MO
  2. NUCALA [Suspect]
     Active Substance: MEPOLIZUMAB
     Indication: Lung disorder

REACTIONS (2)
  - Fall [Unknown]
  - Product use in unapproved indication [Unknown]
